FAERS Safety Report 5305967-5 (Version None)
Quarter: 2007Q2

REPORT INFORMATION
  Report Type: 
  Country: None (occurrence: None)
  Receive Date: 20070424
  Receipt Date: 20070320
  Transmission Date: 20071010
  Serious: Yes (Death, Hospitalization)
  Sender: FDA-Public Use
  Company Number: US-MERCK-0704USA03097

PATIENT
  Age: 66 Year
  Sex: Male

DRUGS (9)
  1. ZOCOR [Suspect]
     Route: 048
  2. ZOCOR [Suspect]
     Route: 048
  3. CYCLOSPORINE [Concomitant]
     Route: 065
  4. MYCOPHENOLATE SODIUM [Concomitant]
     Route: 065
  5. PREDNISONE [Concomitant]
     Route: 065
  6. COLCHICINE [Suspect]
     Indication: GOUT
     Route: 065
  7. COLCHICINE [Suspect]
     Route: 065
  8. PROPOFOL [Concomitant]
     Route: 065
  9. VECURONIUM BROMIDE [Concomitant]
     Route: 065

REACTIONS (9)
  - ASTHENIA [None]
  - BLOOD CREATINE PHOSPHOKINASE INCREASED [None]
  - GOUT [None]
  - MUSCULAR WEAKNESS [None]
  - MYALGIA [None]
  - MYOPATHY [None]
  - OPHTHALMOPLEGIA [None]
  - QUADRIPLEGIA [None]
  - SEPSIS [None]
